FAERS Safety Report 24041907 (Version 2)
Quarter: 2024Q3

REPORT INFORMATION
  Report Type: Spontaneous
  Country: TR (occurrence: TR)
  Receive Date: 20240702
  Receipt Date: 20240813
  Transmission Date: 20241017
  Serious: Yes (Disabling)
  Sender: NOVARTIS
  Company Number: TR-002147023-NVSC2024TR135327

PATIENT
  Age: 43 Year
  Sex: Male

DRUGS (1)
  1. CYCLOSPORINE [Suspect]
     Active Substance: CYCLOSPORINE
     Indication: Nephrotic syndrome
     Dosage: 2 DOSAGE FORM, QD
     Route: 065

REACTIONS (1)
  - Renal failure [Unknown]
